FAERS Safety Report 4546251-7 (Version None)
Quarter: 2005Q1

REPORT INFORMATION
  Report Type: 
  Country: None (occurrence: None)
  Receive Date: 20050103
  Receipt Date: 20041224
  Transmission Date: 20050727
  Serious: Yes (Hospitalization)
  Sender: FDA-Public Use
  Company Number: 2004AP05929

PATIENT
  Age: 28 Year
  Sex: Female

DRUGS (7)
  1. METOPROLOL TARTRATE [Suspect]
     Indication: BASEDOW'S DISEASE
     Dosage: 60 MG DAILY PO
     Route: 048
     Dates: start: 20041015, end: 20041105
  2. INDERAL [Suspect]
     Indication: BASEDOW'S DISEASE
     Dosage: 30 MG DAILY PO
     Route: 048
     Dates: start: 20041107, end: 20041115
  3. MEROPEN [Suspect]
     Indication: AGRANULOCYTOSIS
     Dosage: 1 G DAILY IV
     Route: 042
     Dates: start: 20041107, end: 20041116
  4. METHIMAZOLE [Suspect]
     Indication: BASEDOW'S DISEASE
     Dosage: 80 MG DAILY PO
     Route: 048
     Dates: start: 20041015, end: 20041105
  5. POTASSIUM IODIDE [Concomitant]
  6. FLUCONAZOLE [Concomitant]
  7. FAMOTIDINE [Concomitant]

REACTIONS (7)
  - AGRANULOCYTOSIS [None]
  - INFECTION [None]
  - PANCYTOPENIA [None]
  - PHARYNGEAL OEDEMA [None]
  - PHARYNGOLARYNGEAL PAIN [None]
  - PYREXIA [None]
  - RASH [None]
